FAERS Safety Report 6830450-5 (Version None)
Quarter: 2010Q3

REPORT INFORMATION
  Report Type: 
  Country: None (occurrence: None)
  Receive Date: 20100712
  Receipt Date: 20100701
  Transmission Date: 20110219
  Serious: No
  Sender: FDA-Public Use
  Company Number: US-BIOGENIDEC-2010BI022735

PATIENT
  Age: 37 Year
  Sex: Female

DRUGS (1)
  1. TYSABRI [Suspect]
     Indication: MULTIPLE SCLEROSIS
     Route: 042
     Dates: start: 20090804

REACTIONS (9)
  - ANAEMIA [None]
  - BLOOD POTASSIUM ABNORMAL [None]
  - CONSTIPATION [None]
  - GLUCOSE TOLERANCE IMPAIRED [None]
  - HEPATIC STEATOSIS [None]
  - MEMORY IMPAIRMENT [None]
  - MIGRAINE [None]
  - MYALGIA [None]
  - SPLEEN DISORDER [None]
